FAERS Safety Report 15531363 (Version 1)
Quarter: 2018Q4

REPORT INFORMATION
  Report Type: Report from Study
  Country: US (occurrence: US)
  Receive Date: 20181019
  Receipt Date: 20181019
  Transmission Date: 20190205
  Serious: Yes (Other)
  Sender: FDA-Public Use
  Company Number: US-BRISTOL-MYERS SQUIBB COMPANY-BMS-2018-096807

PATIENT
  Age: 84 Year
  Sex: Female
  Weight: 61.3 kg

DRUGS (3)
  1. NIVOLUMAB [Suspect]
     Active Substance: NIVOLUMAB
     Indication: METASTATIC MALIGNANT MELANOMA
     Dosage: 480 MG, UNK
     Route: 042
     Dates: start: 20180802
  2. CLOBETASOL [Concomitant]
     Active Substance: CLOBETASOL
     Indication: SKIN LESION
     Dosage: UNK, QD
     Route: 065
  3. HF10 (INVESTIGATIONAL PRODUCT) [Suspect]
     Active Substance: CANERPATUREV
     Indication: METASTATIC MALIGNANT MELANOMA
     Dosage: 1 ML, Q2WK
     Route: 030
     Dates: start: 20180501

REACTIONS (3)
  - Lichenoid keratosis [Unknown]
  - Squamous cell carcinoma [Unknown]
  - Keratoacanthoma [Unknown]

NARRATIVE: CASE EVENT DATE: 20180816
